FAERS Safety Report 5045069-9 (Version None)
Quarter: 2006Q2

REPORT INFORMATION
  Report Type: 
  Country: None (occurrence: None)
  Receive Date: 20060601
  Receipt Date: 20060314
  Transmission Date: 20061013
  Serious: Yes (Hospitalization)
  Sender: FDA-Public Use
  Company Number: US200603003663

PATIENT
  Sex: Male
  Weight: 71 kg

DRUGS (2)
  1. CYMBALTA [Suspect]
     Indication: DEPRESSION
     Dosage: 60 MG, EACH MORNING, ORAL
     Route: 048
     Dates: start: 20051104, end: 20051104
  2. CYMBALTA [Suspect]
     Indication: DEPRESSION
     Dosage: 60 MG, EACH MORNING, ORAL
     Route: 048
     Dates: start: 20051111, end: 20051111

REACTIONS (5)
  - FEELING COLD [None]
  - HYPERHIDROSIS [None]
  - MUSCLE TWITCHING [None]
  - MYALGIA [None]
  - SENSATION OF PRESSURE [None]
